FAERS Safety Report 15955367 (Version 2)
Quarter: 2019Q2

REPORT INFORMATION
  Report Type: Spontaneous
  Country: PT (occurrence: PT)
  Receive Date: 20190213
  Receipt Date: 20190403
  Transmission Date: 20190711
  Serious: Yes (Hospitalization, Other)
  Sender: FDA-Public Use
  Company Number: PT-ACCORD-106816

PATIENT
  Age: 77 Year
  Sex: Male

DRUGS (2)
  1. RITUXIMAB. [Suspect]
     Active Substance: RITUXIMAB
     Indication: CHRONIC LYMPHOCYTIC LEUKAEMIA STAGE 1
     Dosage: CYCLIC (4 CYCLES)
  2. BENDAMUSTINE/BENDAMUSTINE HYDROCHLORIDE [Suspect]
     Active Substance: BENDAMUSTINE HYDROCHLORIDE
     Indication: CHRONIC LYMPHOCYTIC LEUKAEMIA STAGE 1
     Route: 042

REACTIONS (6)
  - Infection [Unknown]
  - Haematotoxicity [Unknown]
  - Pleural effusion [Unknown]
  - Drug ineffective [Unknown]
  - Pneumonia [Unknown]
  - Nocardiosis [Unknown]

NARRATIVE: CASE EVENT DATE: 201608
